FAERS Safety Report 20731384 (Version 1)
Quarter: 2022Q2

REPORT INFORMATION
  Report Type: Spontaneous
  Country: None (occurrence: US)
  Receive Date: 20220420
  Receipt Date: 20220420
  Transmission Date: 20220721
  Serious: Yes (Other)
  Sender: FDA-Public Use
  Company Number: US-Performance Health, LLC-2127951

PATIENT
  Sex: Female

DRUGS (1)
  1. BIOFREEZE PROFESSIONAL [Suspect]
     Active Substance: MENTHOL
     Indication: Analgesic therapy
     Dates: start: 20220312, end: 20220312

REACTIONS (1)
  - Application site burn [Unknown]

NARRATIVE: CASE EVENT DATE: 20220312
